FAERS Safety Report 7494981-X (Version None)
Quarter: 2011Q2

REPORT INFORMATION
  Report Type: 
  Country: None (occurrence: None)
  Receive Date: 20110520
  Receipt Date: 20110504
  Transmission Date: 20111010
  Serious: No
  Sender: FDA-Public Use
  Company Number: US-B.I. PHARMACEUTICALS,INC./RIDGEFIELD-2011-BP-09109BP

PATIENT
  Age: 59 Year
  Sex: Male

DRUGS (6)
  1. COREG [Concomitant]
     Dosage: 25 MG
     Dates: start: 20080730
  2. PLAVIX [Concomitant]
     Dosage: 75 MG
     Dates: start: 20080720
  3. IMDUR [Concomitant]
     Dosage: 60 MG
     Dates: start: 20080730
  4. COZAAR [Concomitant]
     Dosage: 25 MG
     Dates: start: 20080730
  5. PRADAXA [Suspect]
     Indication: ATRIAL FIBRILLATION
     Dosage: 300 MG
     Route: 048
     Dates: start: 20110103, end: 20110309
  6. AMIODARONE HCL [Concomitant]
     Dosage: 200 MG
     Dates: start: 20080730

REACTIONS (3)
  - DIARRHOEA [None]
  - ABDOMINAL DISCOMFORT [None]
  - FLATULENCE [None]
